FAERS Safety Report 5291916-5 (Version None)
Quarter: 2007Q2

REPORT INFORMATION
  Report Type: 
  Country: None (occurrence: None)
  Receive Date: 20070403
  Receipt Date: 20070326
  Transmission Date: 20071010
  Serious: Yes (Death, Other)
  Sender: FDA-Public Use
  Company Number: 430008E06ITA

PATIENT
  Age: 63 Year
  Sex: Female
  Weight: 70 kg

DRUGS (5)
  1. NOVANTRONE [Suspect]
     Dosage: 12 MG
     Dates: start: 20050111, end: 20050115
  2. GEMTUZUMAB [Suspect]
     Dosage: 10 MG, ONCE, INTRAVENOUS (NOT OTHERWISE SPECIFIED)
     Route: 042
     Dates: start: 20041229, end: 20041229
  3. CYTARABINE [Suspect]
     Dosage: 170 MG
     Dates: start: 20050111, end: 20050117
  4. ETOPOSIDE [Suspect]
     Dosage: 170 MG
     Dates: start: 20050111, end: 20050113
  5. LEVOFLOXACIN [Concomitant]

REACTIONS (7)
  - HAEMOGLOBIN DECREASED [None]
  - LUNG INFECTION [None]
  - PLATELET COUNT DECREASED [None]
  - RED BLOOD CELL COUNT DECREASED [None]
  - RESPIRATORY FAILURE [None]
  - STAPHYLOCOCCAL INFECTION [None]
  - WHITE BLOOD CELL COUNT DECREASED [None]
